FAERS Safety Report 8010916-5 (Version None)
Quarter: 2011Q4

REPORT INFORMATION
  Report Type: 
  Country: None (occurrence: None)
  Receive Date: 20111228
  Receipt Date: 20111108
  Transmission Date: 20120403
  Serious: Yes (Hospitalization)
  Sender: FDA-Public Use
  Company Number: NL-ROCHE-1011138

PATIENT
  Sex: Female

DRUGS (8)
  1. VINCRISTINE [Suspect]
     Indication: DIFFUSE LARGE B-CELL LYMPHOMA
     Route: 042
     Dates: start: 20110530, end: 20110919
  2. FILGRASTIM [Suspect]
     Indication: DIFFUSE LARGE B-CELL LYMPHOMA
     Route: 058
     Dates: start: 20110531, end: 20110901
  3. COTRIMOXIN [Concomitant]
     Dosage: DOSE: 400
     Dates: start: 20110530
  4. VALACICLOVIR [Concomitant]
     Indication: PROPHYLAXIS
     Dosage: 2X500
     Route: 048
     Dates: start: 20110530
  5. PREDNISONE TAB [Suspect]
     Indication: DIFFUSE LARGE B-CELL LYMPHOMA
     Dosage: 2X50, DAILY
     Route: 048
     Dates: start: 20110530, end: 20110923
  6. CYCLOPHOSPHAMIDE [Suspect]
     Indication: DIFFUSE LARGE B-CELL LYMPHOMA
     Route: 042
     Dates: start: 20110530, end: 20110919
  7. DOXORUBICIN HCL [Suspect]
     Indication: DIFFUSE LARGE B-CELL LYMPHOMA
     Route: 042
     Dates: start: 20110530, end: 20110919
  8. MABTHERA [Suspect]
     Indication: DIFFUSE LARGE B-CELL LYMPHOMA
     Route: 042
     Dates: start: 20110530, end: 20110919

REACTIONS (3)
  - FATIGUE [None]
  - PERICARDIAL EFFUSION [None]
  - CARDIOMYOPATHY [None]
